FAERS Safety Report 9829970 (Version 1)
Quarter: 2014Q1

REPORT INFORMATION
  Report Type: Spontaneous
  Country: US (occurrence: US)
  Receive Date: 20140120
  Receipt Date: 20140120
  Transmission Date: 20141002
  Serious: Yes (Hospitalization)
  Sender: FDA-Public Use
  Company Number: US-SA-2014SA006416

PATIENT
  Age: 84 Year
  Sex: Male

DRUGS (4)
  1. PLAVIX [Suspect]
     Route: 065
  2. ASPIRIN [Suspect]
     Route: 065
  3. ELIQUIS [Suspect]
     Indication: COAGULOPATHY
     Route: 048
  4. HEPARIN [Suspect]
     Route: 065

REACTIONS (6)
  - Hemiparesis [Unknown]
  - Compartment syndrome [Unknown]
  - Atrial fibrillation [Unknown]
  - Cerebrovascular accident [Unknown]
  - Syncope [Unknown]
  - Haemorrhage [Unknown]
